FAERS Safety Report 7910833-2 (Version None)
Quarter: 2011Q4

REPORT INFORMATION
  Report Type: 
  Country: None (occurrence: None)
  Receive Date: 20111114
  Receipt Date: 20111104
  Transmission Date: 20120403
  Serious: Yes (Other)
  Sender: FDA-Public Use
  Company Number: US-BIOGENIDEC-2011BI031821

PATIENT
  Age: 31 Year
  Sex: Female

DRUGS (5)
  1. MULTI-VITAMIN [Concomitant]
  2. PREDNISONE TAB [Concomitant]
  3. FISH OIL [Concomitant]
  4. TYSABRI [Suspect]
     Indication: MULTIPLE SCLEROSIS
     Route: 042
     Dates: start: 20110507, end: 20110702
  5. VITAMIN D [Concomitant]

REACTIONS (1)
  - BREAST CANCER STAGE III [None]
